FAERS Safety Report 21171623 (Version 2)
Quarter: 2023Q2

REPORT INFORMATION
  Report Type: Spontaneous
  Country: US (occurrence: US)
  Receive Date: 20220804
  Receipt Date: 20230512
  Transmission Date: 20230722
  Serious: Yes (Death, Hospitalization)
  Sender: FDA-Public Use
  Company Number: US-MYLANLABS-2022M1082837

PATIENT
  Age: 75 Year
  Sex: Male

DRUGS (10)
  1. CIDOFOVIR [Suspect]
     Active Substance: CIDOFOVIR
     Indication: Adenovirus infection
     Dosage: 3 MG/KG/0.5 WEEKS
     Route: 065
  2. DEXAMETHASONE [Suspect]
     Active Substance: DEXAMETHASONE
     Indication: Pneumocystis jirovecii pneumonia
     Dosage: 6 MILLIGRAM, QD
     Route: 042
  3. SULFAMETHOXAZOLE\TRIMETHOPRIM [Suspect]
     Active Substance: SULFAMETHOXAZOLE\TRIMETHOPRIM
     Indication: Pneumocystis jirovecii pneumonia
     Dosage: 600 MILLIGRAM, BID
     Route: 042
  4. BENDAMUSTINE HYDROCHLORIDE [Suspect]
     Active Substance: BENDAMUSTINE HYDROCHLORIDE
     Indication: Mantle cell lymphoma
     Dosage: UNK, CYCLE (6 CYCLES)
     Route: 065
  5. SULFAMETHOXAZOLE\TRIMETHOPRIM [Suspect]
     Active Substance: SULFAMETHOXAZOLE\TRIMETHOPRIM
     Indication: Pneumocystis jirovecii pneumonia
     Dosage: UNK, TID (1600/320MG 3TIMES PER DAY)
     Route: 065
  6. IMMUNE GLOBULIN NOS [Suspect]
     Active Substance: IMMUNE GLOBULIN NOS
     Indication: Adenovirus infection
     Dosage: UNK
     Route: 042
  7. PROBENECID [Suspect]
     Active Substance: PROBENECID
     Indication: Acute kidney injury
     Dosage: 2000 MILLIGRAM (AS LOADING DOSE)
     Route: 048
  8. PROBENECID [Suspect]
     Active Substance: PROBENECID
     Indication: Prophylaxis
     Dosage: 1000 MILLIGRAM, Q6H
     Route: 048
  9. RITUXIMAB [Concomitant]
     Active Substance: RITUXIMAB
     Indication: Mantle cell lymphoma
     Dosage: UNK, CYCLE, 6 CYCLES
     Route: 065
  10. CYTARABINE [Concomitant]
     Active Substance: CYTARABINE
     Indication: Mantle cell lymphoma
     Dosage: UNK, CYCLE (6 CYCLES)
     Route: 065

REACTIONS (10)
  - Drug ineffective [Fatal]
  - Adenovirus infection [Fatal]
  - Pneumocystis jirovecii pneumonia [Fatal]
  - Off label use [Fatal]
  - Cystitis haemorrhagic [Unknown]
  - Hypertransaminasaemia [Unknown]
  - Liver injury [Unknown]
  - Mental status changes [Unknown]
  - Multiple organ dysfunction syndrome [Unknown]
  - Acute kidney injury [Unknown]
